FAERS Safety Report 6082386-8 (Version None)
Quarter: 2009Q1

REPORT INFORMATION
  Report Type: 
  Country: None (occurrence: None)
  Receive Date: 20090130
  Receipt Date: 20080107
  Transmission Date: 20090719
  Serious: Yes (Hospitalization)
  Sender: FDA-Public Use
  Company Number: 8028912

PATIENT
  Age: 40 Year
  Sex: Male

DRUGS (2)
  1. KEPPRA [Suspect]
     Dates: end: 20080106
  2. ROCEPHIN [Suspect]
     Indication: PYREXIA
     Dates: start: 20080104, end: 20080106

REACTIONS (3)
  - PAIN [None]
  - PYREXIA [None]
  - RASH [None]
